FAERS Safety Report 6183076-3 (Version None)
Quarter: 2009Q2

REPORT INFORMATION
  Report Type: 
  Country: None (occurrence: None)
  Receive Date: 20090507
  Receipt Date: 20090428
  Transmission Date: 20091009
  Serious: Yes (Hospitalization, Other)
  Sender: FDA-Public Use
  Company Number: US-ELI_LILLY_AND_COMPANY-US200904006672

PATIENT
  Age: 59 Year
  Sex: Male

DRUGS (4)
  1. ZYPREXA [Suspect]
     Indication: SCHIZOPHRENIA
     Dosage: 20 MG, DAILY (1/D)
     Dates: end: 20040101
  2. RISPERDAL [Concomitant]
     Dates: start: 20040101
  3. INVEGA [Concomitant]
     Dates: start: 20040101
  4. SYNTHROID [Concomitant]
     Dosage: 0.025 MG, UNK

REACTIONS (4)
  - LOSS OF CONSCIOUSNESS [None]
  - NEUROLEPTIC MALIGNANT SYNDROME [None]
  - PSYCHIATRIC DECOMPENSATION [None]
  - RENAL FAILURE ACUTE [None]
